FAERS Safety Report 20095739 (Version 1)
Quarter: 2021Q4

REPORT INFORMATION
  Report Type: Report from Study
  Country: BR (occurrence: BR)
  Receive Date: 20211122
  Receipt Date: 20211122
  Transmission Date: 20220303
  Serious: Yes (Hospitalization, Other)
  Sender: FDA-Public Use
  Company Number: BR-NOVARTISPH-NVSC2021BR263877

PATIENT
  Age: 59 Year
  Sex: Female

DRUGS (5)
  1. TAMOXIFEN [Suspect]
     Active Substance: TAMOXIFEN
     Indication: Breast cancer
     Dosage: UNK
     Route: 065
     Dates: start: 2012, end: 2017
  2. ANASTROZOLE [Suspect]
     Active Substance: ANASTROZOLE
     Indication: Breast cancer
     Dosage: UNK
     Route: 065
     Dates: start: 2012, end: 2017
  3. LETROZOLE [Suspect]
     Active Substance: LETROZOLE
     Indication: Product used for unknown indication
     Dosage: 2.5 MG, QD
     Route: 065
     Dates: start: 20201219
  4. RIBOCICLIB [Suspect]
     Active Substance: RIBOCICLIB
     Indication: Product used for unknown indication
     Dosage: 600 MG, QD IN 21-DAY CYCLES
     Route: 065
     Dates: start: 20201219
  5. ZOLEDRONIC ACID [Suspect]
     Active Substance: ZOLEDRONIC ACID
     Indication: Product used for unknown indication
     Dosage: 4 MG DOSE THREE-MONTHLY
     Route: 065
     Dates: start: 20201219

REACTIONS (10)
  - Abdominal pain [Not Recovered/Not Resolved]
  - Decreased appetite [Unknown]
  - Abdominal distension [Unknown]
  - Constipation [Unknown]
  - Intestinal obstruction [Unknown]
  - Metastases to peritoneum [Unknown]
  - Ascites [Unknown]
  - Neutropenia [Unknown]
  - Intraductal proliferative breast lesion [Unknown]
  - Hepatic lesion [Unknown]
